FAERS Safety Report 13759832 (Version 2)
Quarter: 2017Q3

REPORT INFORMATION
  Report Type: Spontaneous
  Country: CA (occurrence: CA)
  Receive Date: 20170717
  Receipt Date: 20170718
  Transmission Date: 20171127
  Serious: Yes (Hospitalization)
  Sender: FDA-Public Use
  Company Number: CA-ASTRAZENECA-2017SE66590

PATIENT
  Age: 69 Year
  Sex: Male

DRUGS (17)
  1. SEROQUEL [Suspect]
     Active Substance: QUETIAPINE FUMARATE
     Route: 048
  2. DIMENHYDRINATE. [Concomitant]
     Active Substance: DIMENHYDRINATE
  3. VENLAFAXINE [Concomitant]
     Active Substance: VENLAFAXINE HYDROCHLORIDE
  4. RAMIPRIL. [Concomitant]
     Active Substance: RAMIPRIL
  5. HYDROCHLOROTHIAZIDE. [Concomitant]
     Active Substance: HYDROCHLOROTHIAZIDE
  6. LINAGLIPTIN [Concomitant]
     Active Substance: LINAGLIPTIN
  7. METFORMIN [Concomitant]
     Active Substance: METFORMIN HYDROCHLORIDE
  8. FORXIGA [Suspect]
     Active Substance: DAPAGLIFLOZIN
     Indication: TYPE 2 DIABETES MELLITUS
     Route: 048
     Dates: start: 201705
  9. GLICLAZIDE [Concomitant]
     Active Substance: GLICLAZIDE
  10. ASPIRIN. [Concomitant]
     Active Substance: ASPIRIN
  11. FORXIGA [Suspect]
     Active Substance: DAPAGLIFLOZIN
     Indication: TYPE 2 DIABETES MELLITUS
     Route: 048
  12. RISPERIDONE. [Concomitant]
     Active Substance: RISPERIDONE
  13. IRON [Concomitant]
     Active Substance: IRON
  14. TRAZODONE [Concomitant]
     Active Substance: TRAZODONE HYDROCHLORIDE
  15. EFFEXOR [Concomitant]
     Active Substance: VENLAFAXINE HYDROCHLORIDE
  16. ATORVASTATIN [Concomitant]
     Active Substance: ATORVASTATIN
  17. CEFTRIAXONE. [Concomitant]
     Active Substance: CEFTRIAXONE

REACTIONS (4)
  - Weight increased [Unknown]
  - Paranoia [Unknown]
  - Delirium [Unknown]
  - Urinary tract infection [Recovered/Resolved]

NARRATIVE: CASE EVENT DATE: 20170515
